FAERS Safety Report 19179002 (Version 1)
Quarter: 2021Q2

REPORT INFORMATION
  Report Type: Spontaneous
  Country: US (occurrence: US)
  Receive Date: 20210423
  Receipt Date: 20210423
  Transmission Date: 20210717
  Serious: Yes (Other)
  Sender: FDA-Public Use
  Company Number: None

PATIENT
  Age: 63 Year
  Weight: 58.5 kg

DRUGS (11)
  1. B COMPLEX STRESS [Concomitant]
  2. HERBAL TEAS [Concomitant]
     Active Substance: HERBALS
  3. CYMBALTA [Concomitant]
     Active Substance: DULOXETINE HYDROCHLORIDE
  4. NORCO [Concomitant]
     Active Substance: ACETAMINOPHEN\HYDROCODONE BITARTRATE
  5. DROPS FOR DRY EYE [Concomitant]
  6. CALCIUM [Concomitant]
     Active Substance: CALCIUM
  7. ASPIRIN. [Concomitant]
     Active Substance: ASPIRIN
  8. VITAMIN D3 [Concomitant]
     Active Substance: CHOLECALCIFEROL
  9. PENETREX [Concomitant]
     Active Substance: ENOXACIN
  10. KENALOG [Suspect]
     Active Substance: TRIAMCINOLONE ACETONIDE
     Indication: INTERVERTEBRAL DISC DEGENERATION
     Dates: start: 20150401, end: 20210401
  11. TRAZODONE [Concomitant]
     Active Substance: TRAZODONE HYDROCHLORIDE

REACTIONS (7)
  - Confusional state [None]
  - Mood altered [None]
  - Vomiting [None]
  - Headache [None]
  - Agitation [None]
  - Blood pressure increased [None]
  - Heart rate increased [None]

NARRATIVE: CASE EVENT DATE: 20180301
